FAERS Safety Report 16756945 (Version 3)
Quarter: 2019Q3

REPORT INFORMATION
  Report Type: Spontaneous
  Country: JP (occurrence: JP)
  Receive Date: 20190829
  Receipt Date: 20190912
  Transmission Date: 20191005
  Serious: Yes (Hospitalization)
  Sender: FDA-Public Use
  Company Number: JP-JNJFOC-20190836680

PATIENT
  Age: 36 Year
  Sex: Male

DRUGS (2)
  1. CONCERTA [Suspect]
     Active Substance: METHYLPHENIDATE HYDROCHLORIDE
     Indication: ATTENTION DEFICIT/HYPERACTIVITY DISORDER
     Dosage: UNKNOWN
     Route: 048
     Dates: end: 20190825
  2. RILMAZAFONE HYDROCHLORIDE [Concomitant]
     Active Substance: RILMAZAFONE HYDROCHLORIDE
     Route: 048

REACTIONS (1)
  - Multifocal motor neuropathy [Recovered/Resolved]

NARRATIVE: CASE EVENT DATE: 20190822
